FAERS Safety Report 4837387-1 (Version None)
Quarter: 2005Q4

REPORT INFORMATION
  Report Type: 
  Country: None (occurrence: None)
  Receive Date: 20051122
  Receipt Date: 20051109
  Transmission Date: 20060501
  Serious: Yes (Hospitalization, Other)
  Sender: FDA-Public Use
  Company Number: 2005138353

PATIENT
  Sex: Female

DRUGS (1)
  1. FRAGMIN [Suspect]
     Indication: THROMBOSIS PROPHYLAXIS
     Dosage: SUBCUTANEOUS
     Route: 058
     Dates: end: 20050101

REACTIONS (6)
  - DRUG EXPOSURE DURING PREGNANCY [None]
  - MIGRAINE [None]
  - PULMONARY EMBOLISM [None]
  - STRESS [None]
  - SYNCOPE [None]
  - THROMBOSIS [None]
